FAERS Safety Report 8277819-2 (Version None)
Quarter: 2012Q1

REPORT INFORMATION
  Report Type: 
  Country: None (occurrence: None)
  Receive Date: 20120312
  Receipt Date: 20120210
  Transmission Date: 20120608
  Serious: No
  Sender: FDA-Public Use
  Company Number: 2012SP007882

PATIENT
  Age: 58 Year
  Sex: Female

DRUGS (3)
  1. EFFEXOR [Concomitant]
  2. DOXEPIN HCL [Concomitant]
  3. SAPHRIS [Suspect]
     Indication: BIPOLAR DISORDER
     Dosage: 5 MG, HS, SL
     Route: 060
     Dates: start: 20120109, end: 20120116

REACTIONS (3)
  - UNDERDOSE [None]
  - INAPPROPRIATE SCHEDULE OF DRUG ADMINISTRATION [None]
  - MOUTH ULCERATION [None]
